FAERS Safety Report 4617861-3 (Version None)
Quarter: 2005Q1

REPORT INFORMATION
  Report Type: 
  Country: None (occurrence: None)
  Receive Date: 20050324
  Receipt Date: 20050315
  Transmission Date: 20050727
  Serious: Yes (Other)
  Sender: FDA-Public Use
  Company Number: SK-GLAXOSMITHKLINE-B0375577A

PATIENT
  Age: 44 Year
  Sex: Female

DRUGS (1)
  1. ZINNAT [Suspect]
     Indication: UPPER RESPIRATORY TRACT INFECTION
     Route: 048

REACTIONS (4)
  - HYPOTENSION [None]
  - RASH MACULAR [None]
  - URTICARIA [None]
  - URTICARIA GENERALISED [None]
